FAERS Safety Report 26001204 (Version 1)
Quarter: 2025Q4

REPORT INFORMATION
  Report Type: Spontaneous
  Country: CH (occurrence: CH)
  Receive Date: 20251105
  Receipt Date: 20251105
  Transmission Date: 20260117
  Serious: Yes (Other)
  Sender: PFIZER
  Company Number: None

PATIENT
  Age: 54 Year
  Sex: Female
  Weight: 86 kg

DRUGS (15)
  1. DILTIAZEM [Interacting]
     Active Substance: DILTIAZEM
     Indication: Hypertension
     Dosage: 90 MG, 2X/DAY (FREQ:12 H, MORNING AND EVENING)
     Route: 048
     Dates: start: 20250626
  2. ALVESCO [Interacting]
     Active Substance: CICLESONIDE
     Indication: Asthma
     Dosage: 160 UG, 1X/DAY (VIA NEBULIZER, AT LEAST SINCE 2021)
     Route: 055
  3. HYDROCORTISONE SODIUM SUCCINATE [Interacting]
     Active Substance: HYDROCORTISONE SODIUM SUCCINATE
     Indication: Adrenal insufficiency
     Dosage: UNK, 2X/DAY (30 MG, 20-10-0)
     Route: 048
     Dates: start: 20250614, end: 20250811
  4. HYDROCORTISONE SODIUM SUCCINATE [Interacting]
     Active Substance: HYDROCORTISONE SODIUM SUCCINATE
     Dosage: UNK, 2X/DAY (15 MG, 10-5-0)
     Route: 048
     Dates: start: 20250812
  5. ALLOPURINOL SODIUM [Concomitant]
     Active Substance: ALLOPURINOL SODIUM
     Dosage: 100 MG, 1X/DAY (LONG TERM TREATMENT)
     Route: 048
  6. CHOLECALCIFEROL [Concomitant]
     Active Substance: CHOLECALCIFEROL
     Dosage: 800 IU, 1X/DAY (LONG TERM TREATMENT)
     Route: 048
  7. SODIUM PICOSULFATE [Concomitant]
     Active Substance: SODIUM PICOSULFATE
     Dosage: UNK (IN RESERVE. LONG TERM TREATMENT)
     Route: 048
  8. ESOMEPRAZOL [ESOMEPRAZOLE SODIUM] [Concomitant]
     Dosage: UNK (LONG TERM TREATMENT)
     Route: 048
  9. MOVICOL [Concomitant]
     Active Substance: POLYETHYLENE GLYCOL 3350\POTASSIUM CHLORIDE\SODIUM BICARBONATE\SODIUM CHLORIDE
     Dosage: UNK (LONG TERM TREATMENT)
     Route: 048
  10. TORSEMIDE [Concomitant]
     Active Substance: TORSEMIDE
     Dosage: 10 MG, 1X/DAY (LONG TERM TREATMENT)
     Route: 048
  11. SPIRONOLACTONE [Concomitant]
     Active Substance: SPIRONOLACTONE
     Dosage: 25 MG, 1X/DAY (LONG TERM TREATMENT)
     Route: 048
  12. ACETAMINOPHEN [Concomitant]
     Active Substance: ACETAMINOPHEN
     Dosage: 1 G, AS NEEDED (3 X 1G IN RESERVE, AS NECESSARY)
     Route: 048
  13. ATORVASTATIN CALCIUM [Concomitant]
     Active Substance: ATORVASTATIN CALCIUM
     Dosage: 40 MG, 1X/DAY (LONG TERM TREATMENT)
     Route: 048
  14. AERIUS (DESLORATADINE) [Concomitant]
     Active Substance: DESLORATADINE
     Dosage: UNK (LONG TERM TREATMENT) (AEROSOL)
     Route: 055
  15. PREDNISONE [Suspect]
     Active Substance: PREDNISONE
     Dosage: UNK (FOR ONE WEEK)
     Route: 048
     Dates: start: 202505

REACTIONS (2)
  - Pseudo Cushing^s syndrome [Not Recovered/Not Resolved]
  - Drug interaction [Not Recovered/Not Resolved]

NARRATIVE: CASE EVENT DATE: 20250626
